FAERS Safety Report 20048053 (Version 1)
Quarter: 2021Q4

REPORT INFORMATION
  Report Type: Spontaneous
  Country: EG (occurrence: EG)
  Receive Date: 20211109
  Receipt Date: 20211109
  Transmission Date: 20220303
  Serious: Yes (Death, Other)
  Sender: FDA-Public Use
  Company Number: EG-ABBVIE-21K-048-4152768-00

PATIENT

DRUGS (2)
  1. VENETOCLAX [Suspect]
     Active Substance: VENETOCLAX
     Indication: Acute myeloid leukaemia refractory
     Route: 048
  2. VIDAZA [Concomitant]
     Active Substance: AZACITIDINE
     Indication: Product used for unknown indication
     Dosage: 1/DAY FOR 7 DAYS EVERY 28 DAYS

REACTIONS (3)
  - Death [Fatal]
  - Malignant hypertension [Unknown]
  - Phaeochromocytoma [Unknown]
